FAERS Safety Report 4782795-0 (Version None)
Quarter: 2005Q3

REPORT INFORMATION
  Report Type: 
  Country: None (occurrence: None)
  Receive Date: 20050914
  Receipt Date: 20050309
  Transmission Date: 20060218
  Serious: Yes (Death)
  Sender: FDA-Public Use
  Company Number: 163-20785-03070664

PATIENT
  Age: 61 Year
  Sex: Male

DRUGS (7)
  1. THALOMID [Suspect]
     Indication: BRAIN NEOPLASM
     Dosage: 200 MG, DAILY, ORAL
     Route: 048
     Dates: start: 20030716, end: 20030722
  2. THALOMID [Suspect]
     Dosage: 100 MG, DAILY, ORAL
     Route: 048
     Dates: start: 20030710, end: 20030715
  3. DILANTIN [Concomitant]
  4. DECADRON [Concomitant]
  5. ZOFRAN [Concomitant]
  6. BCN (CARMUSTINE) [Concomitant]
  7. ATENOLOL [Concomitant]

REACTIONS (3)
  - DEATH [None]
  - DISEASE PROGRESSION [None]
  - RASH [None]
